FAERS Safety Report 9665167 (Version 1)
Quarter: 2013Q4

REPORT INFORMATION
  Report Type: Spontaneous
  Country: TR (occurrence: TR)
  Receive Date: 20131101
  Receipt Date: 20131101
  Transmission Date: 20140711
  Serious: Yes (Other)
  Sender: FDA-Public Use
  Company Number: TR-009507513-1310TUR013234

PATIENT
  Age: 30 Year
  Sex: Female

DRUGS (5)
  1. MONTELUKAST SODIUM [Suspect]
     Dosage: 10 MG, QD
     Route: 048
     Dates: start: 2003
  2. SALBUTAMOL SULFATE [Suspect]
  3. IPRATROPIUM BROMIDE [Suspect]
  4. FOLIC ACID [Concomitant]
  5. VITAMINS (UNSPECIFIED) [Concomitant]

REACTIONS (2)
  - Caesarean section [Unknown]
  - Exposure during pregnancy [Recovered/Resolved]
